FAERS Safety Report 18700882 (Version 1)
Quarter: 2021Q1

REPORT INFORMATION
  Report Type: Spontaneous
  Country: US (occurrence: US)
  Receive Date: 20210105
  Receipt Date: 20210105
  Transmission Date: 20210419
  Serious: No
  Sender: FDA-Public Use
  Company Number: None

PATIENT

DRUGS (2)
  1. MODERNA COVID?19 VACCINE [Suspect]
     Active Substance: CX-024414
  2. EUA CASIRIVIMAB. 300 MG.2.5 ML SDV [Suspect]
     Active Substance: CASIRIVIMAB

REACTIONS (7)
  - Wrong product administered [None]
  - Product packaging confusion [None]
  - Manufacturing product shipping issue [None]
  - Product label confusion [None]
  - Product label issue [None]
  - Pain in extremity [None]
  - Product outer packaging issue [None]
